FAERS Safety Report 11326883 (Version 1)
Quarter: 2015Q3

REPORT INFORMATION
  Report Type: Spontaneous
  Country: DE (occurrence: DE)
  Receive Date: 20150731
  Receipt Date: 20150731
  Transmission Date: 20151125
  Serious: Yes (Other)
  Sender: FDA-Public Use
  Company Number: DE-WATSON-2015-16139

PATIENT
  Sex: Female
  Weight: 60 kg

DRUGS (1)
  1. MIRTAZAPINE (UNKNOWN) [Suspect]
     Active Substance: MIRTAZAPINE
     Indication: DEPRESSION
     Dosage: 7.5 MG, UNKNOWN
     Route: 048

REACTIONS (4)
  - Inappropriate affect [Unknown]
  - Irritability [Unknown]
  - Personality change [Unknown]
  - Aggression [Unknown]
